FAERS Safety Report 5134440-2 (Version None)
Quarter: 2006Q4

REPORT INFORMATION
  Report Type: 
  Country: None (occurrence: None)
  Receive Date: 20061023
  Receipt Date: 20061023
  Transmission Date: 20070319
  Serious: Yes (Death)
  Sender: FDA-Public Use
  Company Number: None

PATIENT
  Age: 37 Year
  Sex: Male
  Weight: 71.2147 kg

DRUGS (4)
  1. ATAZANAVIR [Suspect]
     Indication: HIV INFECTION
     Dosage: 300 MG   DAILY   PO
     Route: 048
     Dates: start: 20060830, end: 20060908
  2. RITONAVIR [Suspect]
     Indication: HIV INFECTION
     Dosage: 100 MG  DAILY  PO
     Route: 048
     Dates: start: 20060830, end: 20060908
  3. EMTRIVA [Suspect]
     Indication: HIV INFECTION
     Dosage: 200/300 MG  DAILY  PO
     Route: 048
     Dates: start: 20060830, end: 20060908
  4. ABACAVIR/LAMIVUDINE/PLACEBO [Suspect]
     Indication: HIV INFECTION
     Dosage: 600/300 MG  DAILY  PO
     Route: 048
     Dates: start: 20060830, end: 20060922

REACTIONS (24)
  - BLOOD CREATINE PHOSPHOKINASE MB INCREASED [None]
  - BLOOD GLUCOSE INCREASED [None]
  - BLOOD POTASSIUM INCREASED [None]
  - BLOOD PRESSURE DECREASED [None]
  - BODY TEMPERATURE INCREASED [None]
  - CARBON DIOXIDE DECREASED [None]
  - CHILLS [None]
  - DIARRHOEA [None]
  - DRUG HYPERSENSITIVITY [None]
  - DYSPNOEA [None]
  - EPIGASTRIC DISCOMFORT [None]
  - GASTROENTERITIS BACTERIAL [None]
  - GLUCOSE URINE PRESENT [None]
  - HAEMATURIA [None]
  - HEADACHE [None]
  - METABOLIC ACIDOSIS [None]
  - NAUSEA [None]
  - OEDEMA PERIPHERAL [None]
  - PCO2 DECREASED [None]
  - PROTEIN URINE PRESENT [None]
  - RASH [None]
  - SWELLING FACE [None]
  - TREATMENT NONCOMPLIANCE [None]
  - VOMITING [None]
